FAERS Safety Report 23456024 (Version 1)
Quarter: 2024Q1

REPORT INFORMATION
  Report Type: Spontaneous
  Country: US (occurrence: US)
  Receive Date: 20240130
  Receipt Date: 20240130
  Transmission Date: 20240410
  Serious: No
  Sender: FDA-Public Use
  Company Number: US-SANDOZ-SDZ2024US009364

PATIENT
  Sex: Female

DRUGS (1)
  1. DORZOLAMIDE [Suspect]
     Active Substance: DORZOLAMIDE
     Indication: Product used for unknown indication
     Dosage: 2% 10ML LDP
     Route: 065

REACTIONS (5)
  - Chest pain [Unknown]
  - Thermal burn [Unknown]
  - Ageusia [Unknown]
  - Vision blurred [Unknown]
  - Dizziness [Unknown]
